FAERS Safety Report 5463032-0 (Version None)
Quarter: 2007Q3

REPORT INFORMATION
  Report Type: 
  Country: None (occurrence: None)
  Receive Date: 20070920
  Receipt Date: 20070911
  Transmission Date: 20080115
  Serious: Yes (Death)
  Sender: FDA-Public Use
  Company Number: JP-JNJFOC-20070902871

PATIENT
  Sex: Female
  Weight: 44 kg

DRUGS (9)
  1. REMICADE [Suspect]
     Indication: RHEUMATOID ARTHRITIS
     Route: 042
  2. PREDNISOLONE [Suspect]
     Indication: RHEUMATOID ARTHRITIS
     Route: 048
  3. RHEUMATREX [Suspect]
     Indication: RHEUMATOID ARTHRITIS
     Route: 048
  4. FAMOTIDINE [Concomitant]
     Indication: GASTRIC ULCER
     Route: 048
  5. ULCERMIN [Concomitant]
     Indication: GASTRIC ULCER
     Route: 048
  6. ISONIAZID [Concomitant]
     Indication: ANTIBIOTIC PROPHYLAXIS
     Route: 048
  7. TICLOPIDINE HCL [Concomitant]
     Indication: RHEUMATOID ARTHRITIS
     Route: 048
  8. ZOLPIDEM [Concomitant]
     Route: 048
  9. FOLIAMIN [Concomitant]
     Indication: PROPHYLAXIS
     Route: 048

REACTIONS (1)
  - T-CELL LYMPHOMA [None]
